FAERS Safety Report 7687799-6 (Version None)
Quarter: 2011Q3

REPORT INFORMATION
  Report Type: 
  Country: None (occurrence: None)
  Receive Date: 20110817
  Receipt Date: 20110812
  Transmission Date: 20111222
  Serious: Yes (Hospitalization)
  Sender: FDA-Public Use
  Company Number: US-ELI_LILLY_AND_COMPANY-US201108004451

PATIENT
  Age: 57 Year
  Sex: Female
  Weight: 91.3 kg

DRUGS (14)
  1. FLEXERIL [Concomitant]
  2. CISPLATIN [Suspect]
     Indication: NON-SMALL CELL LUNG CANCER
     Dosage: 75 MG/M2, UNK
     Route: 042
     Dates: start: 20100324
  3. FOLIC ACID [Concomitant]
  4. LANSOPRAZOLE [Concomitant]
  5. WELLBUTRIN [Concomitant]
  6. METOPROLOL                         /00376902/ [Concomitant]
  7. ALPRAZOLAM [Concomitant]
  8. LOSARTAN POTASSIUM [Concomitant]
  9. SYNTHROID [Concomitant]
  10. BEVACIZUMAB [Suspect]
     Indication: NON-SMALL CELL LUNG CANCER
     Dosage: 15 MG/KG, UNK
     Route: 042
     Dates: start: 20100324, end: 20100526
  11. CELEBREX [Concomitant]
  12. ZOFRAN [Concomitant]
  13. PEMETREXED [Suspect]
     Indication: NON-SMALL CELL LUNG CANCER
     Dosage: 500 MG/M2, UNK
     Route: 042
     Dates: start: 20100324
  14. TRIAMTERENE AND HYDROCHLOROTHIAZIDE [Concomitant]

REACTIONS (1)
  - THROMBOSIS [None]
